FAERS Safety Report 7824849-8 (Version None)
Quarter: 2011Q4

REPORT INFORMATION
  Report Type: 
  Country: None (occurrence: None)
  Receive Date: 20111019
  Receipt Date: 20110307
  Transmission Date: 20120403
  Serious: No
  Sender: FDA-Public Use
  Company Number: US-BRISTOL-MYERS SQUIBB COMPANY-15548993

PATIENT
  Age: 48 Year
  Sex: Female

DRUGS (10)
  1. NORETHINDRONE [Concomitant]
  2. ZYRTEC [Concomitant]
  3. DEXLANSOPRAZOLE [Concomitant]
  4. CRESTOR [Concomitant]
  5. AVALIDE [Suspect]
     Indication: HYPERTENSION
     Dosage: 1 DF= 300/12.5 MG
     Route: 048
  6. CALCIUM CARBONATE [Concomitant]
  7. PROZAC [Concomitant]
  8. ATENOLOL [Concomitant]
  9. POTASSIUM [Concomitant]
  10. SPIRONOLACTONE [Concomitant]

REACTIONS (3)
  - FEELING HOT [None]
  - DIARRHOEA [None]
  - NAUSEA [None]
